FAERS Safety Report 14399352 (Version 2)
Quarter: 2018Q1

REPORT INFORMATION
  Report Type: Spontaneous
  Country: US (occurrence: US)
  Receive Date: 20180117
  Receipt Date: 20180225
  Transmission Date: 20180509
  Serious: No
  Sender: FDA-Public Use
  Company Number: US-JNJFOC-20171229495

PATIENT
  Sex: Female

DRUGS (3)
  1. XARELTO [Suspect]
     Active Substance: RIVAROXABAN
     Indication: THROMBOSIS
     Dosage: DAY 22
     Route: 048
     Dates: start: 201712, end: 201712
  2. XARELTO [Suspect]
     Active Substance: RIVAROXABAN
     Indication: THROMBOSIS
     Route: 048
     Dates: start: 201712
  3. XARELTO [Suspect]
     Active Substance: RIVAROXABAN
     Indication: THROMBOSIS
     Dosage: FOR 21 DAYS
     Route: 048
     Dates: start: 20171127, end: 201712

REACTIONS (2)
  - Drug administration error [Unknown]
  - Product label issue [Unknown]

NARRATIVE: CASE EVENT DATE: 201712
